FAERS Safety Report 21803037 (Version 1)
Quarter: 2022Q4

REPORT INFORMATION
  Report Type: Report from Study
  Country: US (occurrence: US)
  Receive Date: 20221231
  Receipt Date: 20221231
  Transmission Date: 20230112
  Serious: No
  Sender: FDA-Public Use
  Company Number: US-ACORDA-ACO_174081_2022

PATIENT
  Sex: Male

DRUGS (2)
  1. INBRIJA [Suspect]
     Active Substance: LEVODOPA
     Indication: Parkinson^s disease
     Dosage: 2 DOSAGE FORM (84MG), PRN (UP TO 5 TIMES DAILY)
     Dates: start: 20220524
  2. INBRIJA [Suspect]
     Active Substance: LEVODOPA
     Indication: Movement disorder

REACTIONS (2)
  - Saliva discolouration [Not Recovered/Not Resolved]
  - Cough [Not Recovered/Not Resolved]
